FAERS Safety Report 4860841-3 (Version None)
Quarter: 2005Q4

REPORT INFORMATION
  Report Type: 
  Country: None (occurrence: None)
  Receive Date: 20051216
  Receipt Date: 20051128
  Transmission Date: 20060501
  Serious: Yes (Hospitalization, Other)
  Sender: FDA-Public Use
  Company Number: US_0505117998

PATIENT
  Age: 38 Year
  Sex: Female
  Weight: 93.6 kg

DRUGS (23)
  1. ZYPREXA [Suspect]
     Indication: BIPOLAR DISORDER
     Dosage: 50 MG,
     Dates: start: 19970101, end: 20050209
  2. CELEXA [Concomitant]
  3. ARICEPT [Concomitant]
  4. DITROPAN/USA/ (OXYBUTYNIN) [Concomitant]
  5. SYMMETREL [Concomitant]
  6. ALTACE [Concomitant]
  7. ZANTAC [Concomitant]
  8. NIACIN [Concomitant]
  9. REBETOL [Concomitant]
  10. PEG-INTRON [Concomitant]
  11. TOPAMAX [Concomitant]
  12. SEREVENT [Concomitant]
  13. ALBUTEROL [Concomitant]
  14. TRAZODONE [Concomitant]
  15. PROLIXIN [Concomitant]
  16. GLUCOPHAGE [Concomitant]
  17. AVANDIA [Concomitant]
  18. PROTRIPTYLINE [Concomitant]
  19. MODAFINIL [Concomitant]
  20. ZIPRASIDONE [Concomitant]
  21. BENZTROPINE MESYLATE [Concomitant]
  22. FLUPHENAZINE [Concomitant]
  23. AMANTADINE HCL [Concomitant]

REACTIONS (12)
  - ANAEMIA [None]
  - BLOOD CHOLESTEROL ABNORMAL [None]
  - CHOLECYSTITIS [None]
  - CHOLELITHIASIS [None]
  - DIABETES MELLITUS NON-INSULIN-DEPENDENT [None]
  - HEPATITIS C [None]
  - HYPERTENSION [None]
  - INSOMNIA [None]
  - OBESITY [None]
  - PLATELET COUNT DECREASED [None]
  - PRESCRIBED OVERDOSE [None]
  - WEIGHT INCREASED [None]
